FAERS Safety Report 5931931-9 (Version None)
Quarter: 2008Q4

REPORT INFORMATION
  Report Type: 
  Country: None (occurrence: None)
  Receive Date: 20081027
  Receipt Date: 20081017
  Transmission Date: 20090506
  Serious: Yes (Hospitalization)
  Sender: FDA-Public Use
  Company Number: PHHY2008AU24911

PATIENT
  Sex: Female

DRUGS (1)
  1. CLOZARIL [Suspect]
     Dosage: 450 MGS
     Dates: start: 20040830

REACTIONS (3)
  - PNEUMONIA [None]
  - RESPIRATORY DISORDER [None]
  - TERTIARY SYPHILIS [None]
